FAERS Safety Report 7942660-4 (Version None)
Quarter: 2011Q4

REPORT INFORMATION
  Report Type: 
  Country: None (occurrence: None)
  Receive Date: 20111128
  Receipt Date: 20111116
  Transmission Date: 20120403
  Serious: Yes (Other)
  Sender: FDA-Public Use
  Company Number: SK-SANOFI-AVENTIS-2011SA075312

PATIENT
  Age: 67 Year
  Sex: Male

DRUGS (1)
  1. DRONEDARONE HCL [Suspect]
     Route: 065

REACTIONS (1)
  - VENTRICULAR EXTRASYSTOLES [None]
